FAERS Safety Report 4343703-X (Version None)
Quarter: 2004Q2

REPORT INFORMATION
  Report Type: 
  Country: None (occurrence: None)
  Receive Date: 20040419
  Receipt Date: 20040412
  Transmission Date: 20050107
  Serious: No
  Sender: FDA-Public Use
  Company Number: 2004UW07278

PATIENT
  Age: 47 Year
  Sex: Female

DRUGS (5)
  1. TOPROL-XL [Suspect]
     Indication: HEART RATE IRREGULAR
     Dates: start: 20031201
  2. SUPER POLIGBRIP EXTRA CARE WITH POLISEAL [Suspect]
     Dates: start: 20030101, end: 20040217
  3. LAMICTAL [Suspect]
     Indication: CONVULSION
     Dates: start: 20031001
  4. DESLORATADINE [Concomitant]
  5. ZOLPIDEM TARTRATE [Concomitant]

REACTIONS (8)
  - CARDIOGENIC SHOCK [None]
  - CONDITION AGGRAVATED [None]
  - CONVULSION [None]
  - GINGIVAL SWELLING [None]
  - LYMPHADENOPATHY [None]
  - NEUROGENIC SHOCK [None]
  - SWELLING FACE [None]
  - SYNCOPE [None]
